FAERS Safety Report 8618852-8 (Version None)
Quarter: 2012Q3

REPORT INFORMATION
  Report Type: 
  Country: None (occurrence: None)
  Receive Date: 20120816
  Receipt Date: 20120816
  Transmission Date: 20120928
  Serious: No
  Sender: FDA-Public Use
  Company Number: None

PATIENT

DRUGS (2)
  1. EFFEXOR [Concomitant]
  2. ADDERALL XR 10 [Suspect]
     Indication: ATTENTION DEFICIT/HYPERACTIVITY DISORDER
     Dosage: 10 MG ORAL QD
     Route: 048

REACTIONS (6)
  - DIZZINESS [None]
  - AGITATION [None]
  - NAUSEA [None]
  - VISION BLURRED [None]
  - PRODUCT SUBSTITUTION ISSUE [None]
  - MEMORY IMPAIRMENT [None]
